FAERS Safety Report 19428238 (Version 1)
Quarter: 2021Q2

REPORT INFORMATION
  Report Type: Spontaneous
  Country: US (occurrence: US)
  Receive Date: 20210617
  Receipt Date: 20210617
  Transmission Date: 20210717
  Serious: Yes (Hospitalization, Other)
  Sender: FDA-Public Use
  Company Number: US-QILU PHARMACEUTICAL CO.LTD.-QLU-000131-2021

PATIENT
  Age: 99 Year
  Sex: Male

DRUGS (13)
  1. VANCOMYCIN [Concomitant]
     Active Substance: VANCOMYCIN
     Indication: EVIDENCE BASED TREATMENT
     Dosage: 1 GRAM
     Route: 065
  2. AMLODIPINE [Concomitant]
     Active Substance: AMLODIPINE BESYLATE
     Indication: PRODUCT USED FOR UNKNOWN INDICATION
     Dosage: UNK
     Route: 065
  3. LABETALOL [Concomitant]
     Active Substance: LABETALOL\LABETALOL HYDROCHLORIDE
     Indication: PRODUCT USED FOR UNKNOWN INDICATION
     Dosage: UNK
     Route: 065
  4. BIMATOPROST. [Concomitant]
     Active Substance: BIMATOPROST
     Indication: PRODUCT USED FOR UNKNOWN INDICATION
     Dosage: UNK
     Route: 065
  5. TAMSULOSIN [Concomitant]
     Active Substance: TAMSULOSIN
     Indication: PRODUCT USED FOR UNKNOWN INDICATION
     Dosage: UNK
     Route: 065
  6. ACETAMINOPHEN. [Concomitant]
     Active Substance: ACETAMINOPHEN
     Indication: PRODUCT USED FOR UNKNOWN INDICATION
     Dosage: 650 MILLIGRAM, SINGLE
     Route: 048
  7. CEFEPIME HYDROCHLORIDE. [Suspect]
     Active Substance: CEFEPIME HYDROCHLORIDE
     Indication: EVIDENCE BASED TREATMENT
     Dosage: 1 GRAM
     Route: 042
  8. ATORVASTATIN [Concomitant]
     Active Substance: ATORVASTATIN
     Indication: PRODUCT USED FOR UNKNOWN INDICATION
     Dosage: UNK
     Route: 065
  9. IPRATROPIUM/ ALBUTEROL [Concomitant]
     Indication: PRODUCT USED FOR UNKNOWN INDICATION
     Dosage: UNK
     Route: 065
  10. CEFEPIME HYDROCHLORIDE. [Suspect]
     Active Substance: CEFEPIME HYDROCHLORIDE
     Indication: SEPSIS
     Dosage: 500 MILLIGRAM, QD
     Route: 042
  11. CEFEPIME HYDROCHLORIDE. [Suspect]
     Active Substance: CEFEPIME HYDROCHLORIDE
     Indication: URINARY TRACT INFECTION
  12. FINASTERIDE. [Concomitant]
     Active Substance: FINASTERIDE
     Indication: PRODUCT USED FOR UNKNOWN INDICATION
     Dosage: UNK
     Route: 065
  13. HEPARIN [Concomitant]
     Active Substance: HEPARIN SODIUM
     Indication: PRODUCT USED FOR UNKNOWN INDICATION
     Dosage: UNK
     Route: 065

REACTIONS (1)
  - Mixed liver injury [Recovered/Resolved]
